FAERS Safety Report 8494619-9 (Version None)
Quarter: 2012Q3

REPORT INFORMATION
  Report Type: 
  Country: None (occurrence: None)
  Receive Date: 20120709
  Receipt Date: 20120627
  Transmission Date: 20120928
  Serious: Yes (Hospitalization, Disabling)
  Sender: FDA-Public Use
  Company Number: US-BAYER-2012-042954

PATIENT
  Age: 79 Year
  Sex: Male
  Weight: 75.75 kg

DRUGS (14)
  1. XARELTO [Interacting]
     Indication: CEREBROVASCULAR ACCIDENT PROPHYLAXIS
  2. ASPIRIN [Suspect]
     Indication: ILL-DEFINED DISORDER
     Dosage: 81 MG, UNK
     Route: 048
  3. VITAMIN D [Concomitant]
  4. MULTIVITAMINS AND IRON [Concomitant]
  5. OMEPRAZOLE [Concomitant]
  6. OMEPRAZOLE [Concomitant]
  7. ASCORBIC ACID [Concomitant]
  8. OMEGA-3 FATTY ACIDS [Concomitant]
  9. ASPIRIN [Interacting]
     Dosage: 81 MG, UNK
     Route: 048
     Dates: start: 20120501
  10. SIMVASTATIN [Concomitant]
     Indication: BLOOD CHOLESTEROL ABNORMAL
  11. XARELTO [Interacting]
     Indication: ATRIAL FIBRILLATION
     Dosage: 20 MG, QD
     Route: 048
     Dates: start: 20120410, end: 20120419
  12. FISH OIL [Concomitant]
  13. METOPROLOL TARTRATE [Concomitant]
     Indication: CARDIAC DISORDER
     Route: 048
  14. VITAMIN A [Concomitant]

REACTIONS (3)
  - ATRIAL FIBRILLATION [None]
  - SPLENIC RUPTURE [None]
  - CATARACT OPERATION [None]
